FAERS Safety Report 5580215-X (Version None)
Quarter: 2008Q1

REPORT INFORMATION
  Report Type: 
  Country: None (occurrence: None)
  Receive Date: 20080103
  Receipt Date: 20071219
  Transmission Date: 20080703
  Serious: Yes (Disabling, Other)
  Sender: FDA-Public Use
  Company Number: IL-AMGEN-US108821

PATIENT
  Sex: Female
  Weight: 71 kg

DRUGS (1)
  1. ENBREL [Suspect]
     Indication: JUVENILE ARTHRITIS
     Dosage: ^25 Y^ TWICE WEEKLY
     Route: 058
     Dates: start: 20031101, end: 20040101

REACTIONS (2)
  - CATARACT [None]
  - OPTIC NEURITIS [None]
